FAERS Safety Report 25686960 (Version 1)
Quarter: 2025Q3

REPORT INFORMATION
  Report Type: Spontaneous
  Country: US (occurrence: US)
  Receive Date: 20250816
  Receipt Date: 20250816
  Transmission Date: 20251021
  Serious: No
  Sender: AUROBINDO
  Company Number: US-AUROBINDO-AUR-APL-2025-026494

PATIENT
  Age: 26 Year
  Sex: Female
  Weight: 99.8 kg

DRUGS (1)
  1. MILI [Suspect]
     Active Substance: ETHINYL ESTRADIOL\NORGESTIMATE
     Indication: Polycystic ovarian syndrome
     Dosage: UNK UNK, ONCE A DAY
     Route: 065
     Dates: start: 20250512

REACTIONS (5)
  - Vomiting [Unknown]
  - Pyrexia [Unknown]
  - Rhinorrhoea [Unknown]
  - Sinusitis [Unknown]
  - Headache [Unknown]
